FAERS Safety Report 24037306 (Version 2)
Quarter: 2024Q3

REPORT INFORMATION
  Report Type: Spontaneous
  Country: JP (occurrence: JP)
  Receive Date: 20240702
  Receipt Date: 20240716
  Transmission Date: 20241016
  Serious: Yes (Death)
  Sender: SANOFI AVENTIS
  Company Number: JP-SAKK-2024SA190992AA

PATIENT
  Age: 30 Year
  Sex: Male

DRUGS (1)
  1. DUPIXENT [Suspect]
     Active Substance: DUPILUMAB
     Indication: Product used for unknown indication
     Route: 058

REACTIONS (3)
  - Overwork [Fatal]
  - Physical deconditioning [Fatal]
  - Heat illness [Fatal]
